FAERS Safety Report 15220664 (Version 1)
Quarter: 2018Q3

REPORT INFORMATION
  Report Type: Spontaneous
  Country: US (occurrence: US)
  Receive Date: 20180731
  Receipt Date: 20180731
  Transmission Date: 20181010
  Serious: Yes (Other)
  Sender: FDA-Public Use
  Company Number: US-SUPERNUS PHARMACEUTICALS, INC.-2018SUP00236

PATIENT
  Age: 4 Week
  Sex: Male
  Weight: .7 kg

DRUGS (3)
  1. LEVETIRACETAM. [Concomitant]
     Active Substance: LEVETIRACETAM
     Route: 065
  2. FOSPHENYTOIN [Concomitant]
     Active Substance: FOSPHENYTOIN
     Route: 065
  3. TOPIRAMATE. [Suspect]
     Active Substance: TOPIRAMATE
     Indication: SEIZURE
     Dosage: 10 MG/KG, 1X/DAY
     Route: 048

REACTIONS (1)
  - Necrotising enterocolitis neonatal [Unknown]
